FAERS Safety Report 4518161-2 (Version None)
Quarter: 2004Q4

REPORT INFORMATION
  Report Type: 
  Country: None (occurrence: None)
  Receive Date: 20041130
  Receipt Date: 20041117
  Transmission Date: 20050328
  Serious: Yes (Other)
  Sender: FDA-Public Use
  Company Number: K200401767

PATIENT
  Age: 48 Year
  Sex: Female
  Weight: 71.7 kg

DRUGS (3)
  1. LEVOXYL [Suspect]
     Indication: HYPOTHYROIDISM
     Dosage: 3 TABLET OF 25 MCG, QD, ORAL
     Route: 048
     Dates: start: 20040101, end: 20040501
  2. MULTIVITAMIN [Concomitant]
  3. IRON (IRON) [Concomitant]

REACTIONS (3)
  - CHOKING [None]
  - ORAL DISCOMFORT [None]
  - SENSATION OF FOREIGN BODY [None]
